FAERS Safety Report 10310575 (Version 1)
Quarter: 2014Q3

REPORT INFORMATION
  Report Type: Spontaneous
  Country: US (occurrence: None)
  Receive Date: 20140716
  Receipt Date: 20140716
  Transmission Date: 20150326
  Serious: Yes (Hospitalization)
  Sender: FDA-Public Use
  Company Number: None

PATIENT
  Age: 58 Year
  Sex: Male
  Weight: 53.7 kg

DRUGS (2)
  1. TAXOTERE [Suspect]
     Active Substance: DOCETAXEL
  2. ERBITUX [Suspect]
     Active Substance: CETUXIMAB

REACTIONS (4)
  - Radiation skin injury [None]
  - Wound haemorrhage [None]
  - Neck pain [None]
  - Pain [None]

NARRATIVE: CASE EVENT DATE: 20140522
